FAERS Safety Report 10533736 (Version 1)
Quarter: 2014Q4

REPORT INFORMATION
  Report Type: Spontaneous
  Country: None (occurrence: None)
  Receive Date: 20141021
  Receipt Date: 20141021
  Transmission Date: 20150529
  Serious: Yes (Other)
  Sender: FDA-Public Use
  Company Number: None

PATIENT
  Age: 3 Year
  Sex: Male
  Weight: 15.88 kg

DRUGS (1)
  1. SINGULAIR [Suspect]
     Active Substance: MONTELUKAST SODIUM
     Indication: RESPIRATORY DISORDER
     Dosage: ONE PACKAGE ONE DAILY TAKEN BY MOUTH
     Route: 048
     Dates: start: 20110101, end: 20120601

REACTIONS (2)
  - Screaming [None]
  - Abnormal behaviour [None]

NARRATIVE: CASE EVENT DATE: 20120601
